FAERS Safety Report 13862766 (Version 1)
Quarter: 2017Q3

REPORT INFORMATION
  Report Type: Spontaneous
  Country: US (occurrence: US)
  Receive Date: 20170814
  Receipt Date: 20170814
  Transmission Date: 20171127
  Serious: No
  Sender: FDA-Public Use
  Company Number: US-ENDO PHARMACEUTICALS INC-2017-002801

PATIENT
  Sex: Male

DRUGS (2)
  1. TRANYLCYPROMINE SULFATE. [Suspect]
     Active Substance: TRANYLCYPROMINE SULFATE
     Indication: ANTIDEPRESSANT THERAPY
     Dosage: 6 DF, OD (STARTED 30 YEARS AGO)
     Route: 065
  2. TRANYLCYPROMINE SULFATE. [Suspect]
     Active Substance: TRANYLCYPROMINE SULFATE
     Dosage: 4 DF, OD
     Route: 065

REACTIONS (1)
  - Intentional product use issue [Unknown]
